FAERS Safety Report 7532135-9 (Version None)
Quarter: 2011Q2

REPORT INFORMATION
  Report Type: 
  Country: None (occurrence: None)
  Receive Date: 20110608
  Receipt Date: 20110531
  Transmission Date: 20111010
  Serious: Yes (Death)
  Sender: FDA-Public Use
  Company Number: DE-PFIZER INC-2011114042

PATIENT
  Age: 75 Year
  Sex: Female
  Weight: 75 kg

DRUGS (12)
  1. SUNITINIB MALATE [Suspect]
     Indication: PANCREATIC CARCINOMA
     Dosage: 50 MG, 1X/DAY
     Route: 048
     Dates: start: 20100825, end: 20100903
  2. DELIX 5 PLUS [Concomitant]
     Indication: HYPERTENSION
     Dosage: 5 MG, 1X/DAY
     Route: 048
     Dates: start: 20000101, end: 20100904
  3. ACTRAPID [Suspect]
     Indication: TYPE 2 DIABETES MELLITUS
     Dosage: 30-22-28
     Route: 058
     Dates: start: 19950101, end: 20100904
  4. AMLODIPINE [Concomitant]
     Indication: HYPERTENSION
     Dosage: 5 MG, 2X/DAY
     Route: 048
     Dates: start: 20000101, end: 20100904
  5. DOXAZOSIN [Concomitant]
     Indication: HYPERTENSION
     Dosage: 4 MG, UNK
     Route: 048
     Dates: start: 20000101, end: 20100904
  6. DIGITOXIN [Concomitant]
     Dosage: 0.07 MG, 1X/DAY
     Route: 048
     Dates: start: 19800101, end: 20100904
  7. DELIX 5 [Concomitant]
     Indication: HYPERTENSION
     Dosage: 5 MG, 1X/DAY
     Route: 048
     Dates: start: 20000101, end: 20100904
  8. PROTAPHAN [Concomitant]
     Indication: TYPE 2 DIABETES MELLITUS
     Dosage: 26 IU, 1X/DAY
     Route: 058
     Dates: start: 19950101, end: 20100904
  9. PANTOPRAZOLE [Concomitant]
     Indication: PROPHYLAXIS
     Dosage: 40 MG, 1X/DAY
     Route: 048
     Dates: start: 20100101, end: 20100904
  10. GEMCITABINE HYDROCHLORIDE [Suspect]
     Dosage: 1770 MG, WEEKLY
     Route: 042
     Dates: start: 20100825, end: 20100902
  11. METHIZOL [Concomitant]
     Indication: TYPE 2 DIABETES MELLITUS
     Dosage: 10 MG, UNK
     Route: 048
     Dates: start: 20000101, end: 20100904
  12. IRENAT [Concomitant]
     Indication: PROPHYLAXIS
     Dosage: 30 GTT, 3X/DAY
     Route: 048
     Dates: start: 20100819, end: 20100904

REACTIONS (1)
  - DEATH [None]
